FAERS Safety Report 5526154-1 (Version None)
Quarter: 2007Q4

REPORT INFORMATION
  Report Type: 
  Country: None (occurrence: None)
  Receive Date: 20071120
  Receipt Date: 20071109
  Transmission Date: 20080405
  Serious: Yes (Other)
  Sender: FDA-Public Use
  Company Number: CHNY2007JP03736

PATIENT
  Age: 63 Year
  Sex: Male

DRUGS (1)
  1. NICOTINE [Suspect]
     Indication: SMOKING CESSATION THERAPY
     Dosage: 7 MG, QD, TRANSDERMAL
     Route: 062
     Dates: end: 20071102

REACTIONS (4)
  - CONCOMITANT DISEASE AGGRAVATED [None]
  - DIPLOPIA [None]
  - EYELID PTOSIS [None]
  - MYASTHENIA GRAVIS [None]
